FAERS Safety Report 20743911 (Version 1)
Quarter: 2022Q2

REPORT INFORMATION
  Report Type: Other
  Country: DE (occurrence: None)
  Receive Date: 20220425
  Receipt Date: 20220425
  Transmission Date: 20220721
  Serious: Yes (Hospitalization, Other)
  Sender: FDA-Public Use
  Company Number: DE-ROCHE-2934071

PATIENT
  Age: 42 Year
  Sex: Female
  Weight: 56 kg

DRUGS (3)
  1. OCREVUS [Suspect]
     Active Substance: OCRELIZUMAB
     Indication: Relapsing-remitting multiple sclerosis
     Route: 042
     Dates: start: 20210126, end: 20210713
  2. COMIRNATY [Suspect]
     Active Substance: TOZINAMERAN
     Indication: COVID-19 prophylaxis
     Dosage: SECOND VACCINE
     Route: 065
     Dates: start: 20210524
  3. CORTISONE [Concomitant]
     Active Substance: CORTISONE
     Dosage: 1-0-0

REACTIONS (6)
  - Malaise [Recovered/Resolved]
  - Erythema nodosum [Recovered/Resolved]
  - Crohn^s disease [Recovered/Resolved]
  - Lymphocyte count decreased [Unknown]
  - COVID-19 [Recovered/Resolved]
  - Pneumonia [Recovered/Resolved]

NARRATIVE: CASE EVENT DATE: 20210524
